FAERS Safety Report 13422835 (Version 1)
Quarter: 2017Q2

REPORT INFORMATION
  Report Type: Spontaneous
  Country: None (occurrence: US)
  Receive Date: 20170408
  Receipt Date: 20170408
  Transmission Date: 20170830
  Serious: Yes (Hospitalization)
  Sender: FDA-Public Use
  Company Number: None

PATIENT
  Age: 74 Year
  Sex: Male
  Weight: 97 kg

DRUGS (1)
  1. TEMOZOLOMIDE. [Suspect]
     Active Substance: TEMOZOLOMIDE
     Dates: end: 20170128

REACTIONS (7)
  - Gastrooesophageal reflux disease [None]
  - Dysphagia [None]
  - Anaemia megaloblastic [None]
  - Pancytopenia [None]
  - Weight decreased [None]
  - Failure to thrive [None]
  - Platelet count decreased [None]

NARRATIVE: CASE EVENT DATE: 20170217
